FAERS Safety Report 18692385 (Version 1)
Quarter: 2021Q1

REPORT INFORMATION
  Report Type: Spontaneous
  Country: US (occurrence: US)
  Receive Date: 20210103
  Receipt Date: 20210103
  Transmission Date: 20210419
  Serious: Yes (Hospitalization)
  Sender: FDA-Public Use
  Company Number: US-ALKERMES INC.-ALK-2020-005921

PATIENT
  Age: 21 Year
  Sex: Male
  Weight: 70.3 kg

DRUGS (1)
  1. VIVITROL [Suspect]
     Active Substance: NALTREXONE
     Indication: DRUG DEPENDENCE
     Dosage: 380 MILLIGRAM, QMO
     Route: 030
     Dates: start: 20200516, end: 20200516

REACTIONS (9)
  - Treatment noncompliance [Not Recovered/Not Resolved]
  - Drug dependence [Unknown]
  - Pneumothorax [Unknown]
  - Road traffic accident [Recovered/Resolved]
  - Craniocerebral injury [Unknown]
  - Spinal cord injury sacral [Recovered/Resolved]
  - Splenic rupture [Unknown]
  - Pelvic fracture [Unknown]
  - Multiple fractures [Unknown]

NARRATIVE: CASE EVENT DATE: 202006
